FAERS Safety Report 7971522-1 (Version None)
Quarter: 2011Q4

REPORT INFORMATION
  Report Type: 
  Country: None (occurrence: None)
  Receive Date: 20111212
  Receipt Date: 20111128
  Transmission Date: 20120403
  Serious: Yes (Other)
  Sender: FDA-Public Use
  Company Number: FR-ELI_LILLY_AND_COMPANY-FR201111008067

PATIENT
  Sex: Female
  Weight: 54 kg

DRUGS (2)
  1. PROZAC [Suspect]
     Indication: DEPRESSION
     Dosage: 1 DF, QD
     Route: 048
     Dates: start: 19960101, end: 19960101
  2. MEDIATOR [Concomitant]
     Indication: OVERWEIGHT
     Dosage: 450 MG, QD
     Route: 048
     Dates: start: 19970101, end: 20051001

REACTIONS (3)
  - MITRAL VALVE INCOMPETENCE [None]
  - AORTIC VALVE INCOMPETENCE [None]
  - TRICUSPID VALVE INCOMPETENCE [None]
